FAERS Safety Report 4457533-1 (Version None)
Quarter: 2004Q3

REPORT INFORMATION
  Report Type: 
  Country: None (occurrence: None)
  Receive Date: 20040922
  Receipt Date: 20040913
  Transmission Date: 20050211
  Serious: Yes (Other)
  Sender: FDA-Public Use
  Company Number: 200414279BCC

PATIENT
  Sex: Female
  Weight: 71.6683 kg

DRUGS (7)
  1. ASPIRIN [Suspect]
     Indication: THROMBOSIS
     Dosage: 975 MG, QD, ORAL
     Route: 048
     Dates: start: 19960101, end: 19970101
  2. COUMADIN [Suspect]
     Indication: THROMBOSIS
     Dosage: QD
  3. CELEBREX [Concomitant]
  4. NORVASC [Concomitant]
  5. ATENOLOL [Concomitant]
  6. MEDICATION FOR DIABETES (NOS) [Concomitant]
  7. ASPIRIN [Concomitant]

REACTIONS (7)
  - CATARACT [None]
  - EYE HAEMORRHAGE [None]
  - GLAUCOMA [None]
  - OVARIAN CYST [None]
  - RETINAL DISORDER [None]
  - THROMBOSIS [None]
  - VISUAL ACUITY REDUCED [None]
